FAERS Safety Report 13855111 (Version 1)
Quarter: 2017Q3

REPORT INFORMATION
  Report Type: Report from Study
  Country: US (occurrence: US)
  Receive Date: 20170810
  Receipt Date: 20170810
  Transmission Date: 20171127
  Serious: Yes (Death)
  Sender: FDA-Public Use
  Company Number: US-EXELIXIS-CABO-17010045

PATIENT
  Age: 72 Year
  Sex: Female

DRUGS (5)
  1. LIDODERM [Concomitant]
     Active Substance: LIDOCAINE
  2. TRAMADOL. [Concomitant]
     Active Substance: TRAMADOL
  3. BETAMETHASONE. [Concomitant]
     Active Substance: BETAMETHASONE
  4. CABOMETYX [Suspect]
     Active Substance: CABOZANTINIB S-MALATE
     Indication: RENAL CANCER
     Dosage: 60 MG, QD
     Route: 048
     Dates: start: 201705, end: 201707
  5. VITAMIN B12 [Concomitant]
     Active Substance: CYANOCOBALAMIN

REACTIONS (1)
  - Death [Fatal]

NARRATIVE: CASE EVENT DATE: 20170712
